FAERS Safety Report 20802398 (Version 1)
Quarter: 2022Q2

REPORT INFORMATION
  Report Type: Spontaneous
  Country: US (occurrence: None)
  Receive Date: 20220509
  Receipt Date: 20220509
  Transmission Date: 20220721
  Serious: No
  Sender: FDA-Public Use
  Company Number: None

PATIENT
  Age: 53 Year
  Sex: Female
  Weight: 75 kg

DRUGS (1)
  1. NIRMATRELVIR\RITONAVIR [Suspect]
     Active Substance: NIRMATRELVIR\RITONAVIR
     Indication: COVID-19
     Dosage: OTHER QUANTITY : 300MG/100MG;?FREQUENCY : TWICE A DAY;?
     Route: 048
     Dates: start: 20220422, end: 20220426

REACTIONS (14)
  - Dizziness [None]
  - Headache [None]
  - Nausea [None]
  - Vomiting [None]
  - Palpitations [None]
  - Fatigue [None]
  - Anxiety [None]
  - Feeling abnormal [None]
  - Communication disorder [None]
  - Throat irritation [None]
  - Abdominal pain [None]
  - Eye pain [None]
  - Decreased appetite [None]
  - Pyrexia [None]

NARRATIVE: CASE EVENT DATE: 20220429
